FAERS Safety Report 4770635-5 (Version None)
Quarter: 2005Q3

REPORT INFORMATION
  Report Type: 
  Country: None (occurrence: None)
  Receive Date: 20050914
  Receipt Date: 20050831
  Transmission Date: 20060218
  Serious: Yes (Hospitalization, Other)
  Sender: FDA-Public Use
  Company Number: HQWYE256406SEP05

PATIENT
  Age: 14 Year
  Sex: Female

DRUGS (6)
  1. ADVIL [Suspect]
     Dosage: ORAL
     Route: 048
     Dates: start: 20050710, end: 20050710
  2. AMIKIN [Suspect]
     Dates: start: 20050711, end: 20050724
  3. ROCEPHIN [Suspect]
  4. BELLADONNA (BELLADONNA EXTRACT) [Concomitant]
  5. EFFERALGAN (PARACETAMOL) [Concomitant]
  6. VOGALENE (METOPIMAZINE) [Concomitant]

REACTIONS (7)
  - DEHYDRATION [None]
  - INFLAMMATION [None]
  - PYELONEPHRITIS ACUTE [None]
  - RENAL FAILURE ACUTE [None]
  - RHABDOMYOLYSIS [None]
  - SEPSIS [None]
  - VOMITING [None]
